FAERS Safety Report 11140247 (Version 1)
Quarter: 2015Q2

REPORT INFORMATION
  Report Type: Spontaneous
  Country: GR (occurrence: GR)
  Receive Date: 20150527
  Receipt Date: 20150527
  Transmission Date: 20150821
  Serious: Yes (Other)
  Sender: FDA-Public Use
  Company Number: GR-WATSON-2015-10135

PATIENT
  Age: 43 Year
  Sex: Male

DRUGS (8)
  1. HISTAMINE [Concomitant]
     Active Substance: HISTAMINE
     Indication: SKIN TEST
     Dosage: UNK
     Route: 058
  2. AMOXICILLIN. [Suspect]
     Active Substance: AMOXICILLIN
     Indication: SKIN TEST
     Dosage: UNK, SINGLE
     Route: 048
  3. PENICILLOYL POLYLYSINE [Concomitant]
     Indication: SKIN TEST
     Dosage: UNK
     Route: 058
  4. AMPICILLIN (UNKNOWN) [Suspect]
     Active Substance: AMPICILLIN
     Indication: SKIN TEST
     Dosage: 20 MG/ML, SINGLE
     Route: 058
  5. SALINE [Concomitant]
     Active Substance: SODIUM CHLORIDE
     Indication: SKIN TEST
     Dosage: UNK
     Route: 058
  6. AMLODIPINE W/OLMESARTAN [Concomitant]
     Indication: ESSENTIAL HYPERTENSION
     Dosage: 20 MG/5 MG, DAILY
     Route: 065
  7. CEFUROXIME. [Concomitant]
     Active Substance: CEFUROXIME
     Indication: SKIN TEST
     Dosage: 2 MG/ML, SINGLE
     Route: 058
  8. AMOXICILLIN. [Suspect]
     Active Substance: AMOXICILLIN
     Indication: TOOTH ABSCESS
     Dosage: 20 MG/ML
     Route: 058

REACTIONS (1)
  - Anaphylactic reaction [Recovered/Resolved]
